FAERS Safety Report 6049488-3 (Version None)
Quarter: 2009Q1

REPORT INFORMATION
  Report Type: 
  Country: None (occurrence: None)
  Receive Date: 20090121
  Receipt Date: 20090105
  Transmission Date: 20090719
  Serious: Yes (Hospitalization, Other)
  Sender: FDA-Public Use
  Company Number: GB-1168267

PATIENT
  Age: 29 Year
  Sex: Female

DRUGS (3)
  1. MAXIDEX FORTE DROPS [Suspect]
     Dosage: 1 WEEK 2 DAYS
     Route: 047
     Dates: start: 20081208, end: 20081217
  2. OFLOXACIN (OFLOXACIN) [Concomitant]
  3. ACULAR [Concomitant]

REACTIONS (3)
  - ENDOPHTHALMITIS [None]
  - EYE INJURY [None]
  - MEDICAL DEVICE COMPLICATION [None]
